FAERS Safety Report 26209710 (Version 1)
Quarter: 2025Q4

REPORT INFORMATION
  Report Type: Spontaneous
  Country: CN (occurrence: CN)
  Receive Date: 20251229
  Receipt Date: 20251229
  Transmission Date: 20260117
  Serious: Yes (Hospitalization)
  Sender: PFIZER
  Company Number: CN-PFIZER INC-PV202500149851

PATIENT
  Age: 53 Year
  Sex: Male
  Weight: 62 kg

DRUGS (1)
  1. CYTARABINE [Suspect]
     Active Substance: CYTARABINE
     Indication: Acute leukaemia
     Dosage: 1 G, 2X/DAY
     Route: 041
     Dates: start: 20250826, end: 20250829

REACTIONS (4)
  - Myelosuppression [Not Recovered/Not Resolved]
  - Immunodeficiency [Unknown]
  - Respiratory tract infection [Unknown]
  - Febrile infection [Unknown]

NARRATIVE: CASE EVENT DATE: 20250101
